FAERS Safety Report 8173057-2 (Version None)
Quarter: 2012Q1

REPORT INFORMATION
  Report Type: 
  Country: None (occurrence: None)
  Receive Date: 20120223
  Receipt Date: 20120202
  Transmission Date: 20120608
  Serious: Yes (Other)
  Sender: FDA-Public Use
  Company Number: JPI-P-019671

PATIENT
  Age: 36 Year
  Sex: Female
  Weight: 62.5964 kg

DRUGS (2)
  1. ARMODAFINIL [Concomitant]
  2. XYREM [Suspect]
     Indication: NARCOLEPSY
     Dosage: 4.5 GM (2.25 GM, 2 IN 1 D), ORAL
     Route: 048
     Dates: start: 20110526

REACTIONS (1)
  - MULTIFOCAL MOTOR NEUROPATHY [None]
